FAERS Safety Report 11676604 (Version 5)
Quarter: 2016Q1

REPORT INFORMATION
  Report Type: Spontaneous
  Country: US (occurrence: US)
  Receive Date: 20151028
  Receipt Date: 20160208
  Transmission Date: 20160525
  Serious: No
  Sender: FDA-Public Use
  Company Number: US-PFIZER INC-2015365338

PATIENT
  Age: 11 Year
  Sex: Female
  Weight: 45 kg

DRUGS (4)
  1. GENOTROPIN [Suspect]
     Active Substance: SOMATROPIN
     Indication: GROWTH HORMONE DEFICIENCY
     Dosage: 2.4 MG, CYCLIC (FOR 6 DAYS A WEEK)
  2. GENOTROPIN [Suspect]
     Active Substance: SOMATROPIN
     Dosage: UNK
     Dates: end: 201509
  3. LEVOTHYROXINE. [Concomitant]
     Active Substance: LEVOTHYROXINE
     Indication: THYROID DISORDER
     Dosage: 0.5 DF, 1X/DAY
     Dates: start: 2013
  4. HYDROCORTISONE. [Concomitant]
     Active Substance: HYDROCORTISONE
     Indication: BLOOD CORTISOL DECREASED
     Dosage: 1.5 DF, 2X/DAY (ONE TIME IN THE MORNING AND ONE TIME IN THE EVENING)
     Dates: start: 2015

REACTIONS (1)
  - Weight increased [Not Recovered/Not Resolved]
